FAERS Safety Report 5898404-3 (Version None)
Quarter: 2008Q3

REPORT INFORMATION
  Report Type: 
  Country: None (occurrence: None)
  Receive Date: 20080925
  Receipt Date: 20071019
  Transmission Date: 20090109
  Serious: No
  Sender: FDA-Public Use
  Company Number: A0688718A

PATIENT
  Age: 52 Year
  Sex: Female

DRUGS (7)
  1. WELLBUTRIN XL [Suspect]
     Indication: FATIGUE
     Dosage: 150MG PER DAY
     Route: 048
     Dates: start: 20071017
  2. PLAVIX [Concomitant]
  3. FOLIC ACID [Concomitant]
  4. PEPCID [Concomitant]
  5. ASPIRIN [Concomitant]
  6. VALSARTAN [Concomitant]
  7. ZETIA [Concomitant]

REACTIONS (1)
  - CRYING [None]
